FAERS Safety Report 5988886-0 (Version None)
Quarter: 2008Q4

REPORT INFORMATION
  Report Type: 
  Country: None (occurrence: None)
  Receive Date: 20081210
  Receipt Date: 20081124
  Transmission Date: 20090506
  Serious: Yes (Hospitalization)
  Sender: FDA-Public Use
  Company Number: DE-GENENTECH-272736

PATIENT
  Sex: Female

DRUGS (2)
  1. HERCEPTIN [Suspect]
     Indication: BREAST CANCER
     Dosage: UNK
     Route: 065
  2. NAVELBINE [Suspect]
     Indication: BREAST CANCER
     Dosage: UNK

REACTIONS (3)
  - CHEST PAIN [None]
  - ERYTHEMA [None]
  - LYMPHOEDEMA [None]
